FAERS Safety Report 20582978 (Version 6)
Quarter: 2024Q4

REPORT INFORMATION
  Report Type: Spontaneous
  Country: US (occurrence: US)
  Receive Date: 20220311
  Receipt Date: 20241030
  Transmission Date: 20250115
  Serious: Yes (Death, Disabling, Other)
  Sender: ORGANON
  Company Number: US-ORGANON-O2203USA000867

PATIENT
  Sex: Male

DRUGS (3)
  1. SINGULAIR [Suspect]
     Active Substance: MONTELUKAST SODIUM
     Indication: Asthma
     Dosage: 4 MILLIGRAM
     Route: 048
     Dates: start: 2004, end: 2013
  2. SINGULAIR [Suspect]
     Active Substance: MONTELUKAST SODIUM
     Indication: Asthma
     Dosage: 5 MILLIGRAM
     Route: 048
     Dates: start: 2004, end: 2013
  3. ALBUTEROL SULFATE [Concomitant]
     Active Substance: ALBUTEROL SULFATE
     Indication: Asthma
     Dosage: UNK
     Dates: start: 2004, end: 2013

REACTIONS (7)
  - Completed suicide [Fatal]
  - Neuropsychological symptoms [Not Recovered/Not Resolved]
  - Hallucination [Not Recovered/Not Resolved]
  - Sleep terror [Not Recovered/Not Resolved]
  - Thinking abnormal [Not Recovered/Not Resolved]
  - Somnambulism [Not Recovered/Not Resolved]
  - Tonsillectomy [Unknown]

NARRATIVE: CASE EVENT DATE: 20040101
